FAERS Safety Report 13582346 (Version 1)
Quarter: 2017Q2

REPORT INFORMATION
  Report Type: Spontaneous
  Country: JP (occurrence: JP)
  Receive Date: 20170525
  Receipt Date: 20170525
  Transmission Date: 20170830
  Serious: Yes (Other)
  Sender: FDA-Public Use
  Company Number: JP-DEPOMED, INC.-JP-2017DEP001067

PATIENT
  Age: 28 Year
  Sex: Female
  Weight: 67 kg

DRUGS (6)
  1. NITROGLYCERIN. [Suspect]
     Active Substance: NITROGLYCERIN
     Dosage: 100 ?G, SINGLE
     Route: 042
  2. ROPIVACAINE [Suspect]
     Active Substance: ROPIVACAINE
     Indication: SPINAL ANAESTHESIA
     Dosage: 2 ML, SINGLE
     Route: 008
  3. PHENYLEPHRINE [Suspect]
     Active Substance: PHENYLEPHRINE\PHENYLEPHRINE HYDROCHLORIDE
     Indication: BLOOD PRESSURE ABNORMAL
     Dosage: 100 ?G, SINGLE
     Route: 040
  4. BUPIVACAINE. [Suspect]
     Active Substance: BUPIVACAINE
     Indication: SPINAL ANAESTHESIA
     Dosage: 10 MG, SINGLE
     Route: 008
  5. NITROGLYCERIN. [Suspect]
     Active Substance: NITROGLYCERIN
     Indication: MUSCLE RELAXANT THERAPY
     Dosage: 100 ?G, SINGLE
     Route: 042
  6. FENTANYL. [Suspect]
     Active Substance: FENTANYL
     Indication: SPINAL ANAESTHESIA
     Dosage: 15 ?G, SINGLE
     Route: 008

REACTIONS (3)
  - Bradycardia [Recovered/Resolved]
  - Syncope [Recovered/Resolved]
  - Cardiac arrest [Recovered/Resolved]
